FAERS Safety Report 9303807 (Version 1)
Quarter: 2013Q2

REPORT INFORMATION
  Report Type: Spontaneous
  Country: US (occurrence: None)
  Receive Date: 20130521
  Receipt Date: 20130521
  Transmission Date: 20140414
  Serious: Yes (Hospitalization)
  Sender: FDA-Public Use
  Company Number: None

PATIENT
  Age: 65 Year
  Sex: Male
  Weight: 95.2 kg

DRUGS (2)
  1. TRIHEXYPHENIDYL [Suspect]
     Dosage: 2 MG TID PO
     Route: 048
     Dates: start: 20130311, end: 20130328
  2. CARBIDOPA/LEVODOPA [Suspect]
     Dosage: 50/100 MG QID PO
     Route: 048
     Dates: start: 20130128, end: 20130328

REACTIONS (2)
  - Confusional state [None]
  - Hallucination [None]
